FAERS Safety Report 10159836 (Version 1)
Quarter: 2014Q2

REPORT INFORMATION
  Report Type: Spontaneous
  Country: US (occurrence: US)
  Receive Date: 20140508
  Receipt Date: 20140508
  Transmission Date: 20141212
  Serious: Yes (Other)
  Sender: FDA-Public Use
  Company Number: US-BAYER-2014-062866

PATIENT
  Age: 62 Year
  Sex: Female
  Weight: 71.2 kg

DRUGS (29)
  1. SOTALOL [Suspect]
     Indication: ATRIAL FIBRILLATION
     Dosage: UNK
     Route: 048
     Dates: start: 2012, end: 201401
  2. SOTALOL [Suspect]
     Indication: VENTRICULAR EXTRASYSTOLES
  3. AMPYRA [Suspect]
     Indication: GAIT DISTURBANCE
     Dosage: 10 MG, BID
     Route: 048
  4. LOPRESSOR [Suspect]
     Indication: ATRIAL FIBRILLATION
     Dosage: UNK
     Route: 048
     Dates: start: 2004, end: 2012
  5. ARICEPT [Concomitant]
     Dosage: 5 MG, HS
  6. ASPIRIN [Concomitant]
     Dosage: 325 MG, QD
  7. BACLOFEN [Concomitant]
     Dosage: 20 MG, BID
  8. BACLOFEN [Concomitant]
     Dosage: 80 MG, HS
  9. DETROL LA [Concomitant]
     Dosage: 4 MG, 1-2 TIMES DAILY
  10. SYNTHROID [Concomitant]
     Dosage: 0.125 MG, QD
  11. LIPITOR [Concomitant]
     Dosage: 20 MG, QD
  12. NEURONTIN [Concomitant]
     Dosage: 600 MG, TID
  13. NEXIUM [Concomitant]
     Dosage: UNK UNK, BID BEFORE MEALS
  14. NUVIGIL [Concomitant]
     Dosage: 250 MG, QD
  15. TYSABRI [Concomitant]
     Dosage: 300/15 ML INJECTION, Q1MON
  16. ZOLOFT [Concomitant]
     Dosage: 100 MG, BID
  17. MULTIVITAMINS [Concomitant]
     Dosage: UNK UNK, QD
  18. FISH OIL [Concomitant]
     Dosage: UNK UNK, BID
  19. VITAMIN B6 [Concomitant]
     Dosage: UNK UNK, QD
  20. VITAMIN B12 [Concomitant]
     Dosage: UNK UNK, QD
  21. CALCIUM +VIT D [Concomitant]
     Dosage: UNK UNK, QD
  22. BIOTIN [Concomitant]
     Dosage: UNK UNK, QD
  23. LYSINE [Concomitant]
     Dosage: UNK UNK, QD
  24. AMOXICILLIN [Concomitant]
     Indication: PROPHYLAXIS
     Dosage: UNK
  25. INFLUENZA VACCINE [Concomitant]
     Dosage: ANNUALLY
  26. NAPROSYN [Concomitant]
     Dosage: 250 MG, UNK
  27. COMBIVENT [Concomitant]
  28. DOXYCYCLINE [Concomitant]
     Dosage: 100 MG, UNK
  29. FLONASE [Concomitant]
     Dosage: 0.05 %, UNK

REACTIONS (7)
  - Atrial fibrillation [Recovering/Resolving]
  - Heart rate decreased [Recovered/Resolved]
  - Surgery [Unknown]
  - Ventricular extrasystoles [Unknown]
  - Hypotension [Recovered/Resolved]
  - Chest pain [Unknown]
  - Blood pressure increased [Unknown]
